FAERS Safety Report 21886911 (Version 3)
Quarter: 2023Q1

REPORT INFORMATION
  Report Type: Report from Study
  Country: CH (occurrence: CH)
  Receive Date: 20230119
  Receipt Date: 20230209
  Transmission Date: 20230418
  Serious: Yes (Death)
  Sender: FDA-Public Use
  Company Number: CH-PFM-2023-00340

PATIENT
  Sex: Female
  Weight: 36 kg

DRUGS (8)
  1. BRAFTOVI [Suspect]
     Active Substance: ENCORAFENIB
     Indication: Colorectal cancer
     Dosage: 225 MG/DAY
     Route: 048
     Dates: start: 20220915
  2. CETUXIMAB [Suspect]
     Active Substance: CETUXIMAB
     Indication: Colorectal cancer
     Dosage: 526 MG/M2, WEEKLY (LIQUID DILUTION)
     Route: 042
     Dates: start: 20220916
  3. MINOCYCLINE HYDROCHLORIDE [Concomitant]
     Active Substance: MINOCYCLINE HYDROCHLORIDE
     Indication: Prophylaxis
     Dosage: 50 MG, BID (2/DAY)
     Route: 048
  4. DAFALGAN [Concomitant]
     Active Substance: ACETAMINOPHEN
     Indication: Diagnostic procedure
     Dosage: 1000 MG, QID (4/DAY)
     Route: 048
  5. PANTOPRAZOL BETA [Concomitant]
     Indication: Prophylaxis
     Dosage: 40 MG, DAILY
     Route: 048
  6. SUPRADYN [BIOTIN;CALCIUM ASCORBATE;CALCIUM CARBONATE;CHROMIUM NITRATE; [Concomitant]
     Indication: Prophylaxis
     Dosage: 50 MG, DAILY
     Route: 048
  7. XARELTO [Concomitant]
     Active Substance: RIVAROXABAN
     Indication: Prophylaxis
     Dosage: 20 MG, DAILY
     Route: 048
     Dates: start: 20220107
  8. FRAGMIN [Concomitant]
     Active Substance: DALTEPARIN SODIUM
     Indication: Prophylaxis
     Dosage: 0.2 ML, DAILY
     Route: 058
     Dates: start: 20220107

REACTIONS (1)
  - Malaise [Fatal]

NARRATIVE: CASE EVENT DATE: 20221219
